FAERS Safety Report 7095521-X (Version None)
Quarter: 2010Q4

REPORT INFORMATION
  Report Type: 
  Country: None (occurrence: None)
  Receive Date: 20101102
  Receipt Date: 20101018
  Transmission Date: 20110411
  Serious: Yes (Other)
  Sender: FDA-Public Use
  Company Number: 1000017021

PATIENT
  Sex: Male
  Weight: 76 kg

DRUGS (4)
  1. MEMANTINE HCL [Suspect]
     Indication: DEMENTIA ALZHEIMER'S TYPE
     Dosage: 20 MG, 1 IN 1 D)
  2. MEMANTINE HCL [Suspect]
     Indication: PARKINSONISM
     Dosage: 20 MG, 1 IN 1 D)
  3. MEMANTINE HCL [Suspect]
     Indication: DEMENTIA ALZHEIMER'S TYPE
  4. MEMANTINE HCL [Suspect]
     Indication: PARKINSONISM

REACTIONS (1)
  - EPILEPSY [None]
